FAERS Safety Report 11228186 (Version 1)
Quarter: 2015Q2

REPORT INFORMATION
  Report Type: Spontaneous
  Country: MX (occurrence: None)
  Receive Date: 20150626
  Receipt Date: 20150626
  Transmission Date: 20150821
  Serious: Yes (Other)
  Sender: FDA-Public Use
  Company Number: MX-TORRENT-00000060

PATIENT
  Age: 72 Year
  Sex: Female

DRUGS (1)
  1. DONEPEZIL (INN:DONEPEZIL) [Suspect]
     Active Substance: DONEPEZIL
     Indication: COGNITIVE DISORDER
     Route: 048

REACTIONS (1)
  - Uncinate fits [None]
